FAERS Safety Report 24844303 (Version 1)
Quarter: 2025Q1

REPORT INFORMATION
  Report Type: Spontaneous
  Country: US (occurrence: None)
  Receive Date: 20250114
  Receipt Date: 20250114
  Transmission Date: 20250408
  Serious: Yes (Hospitalization)
  Sender: FDA-CTU
  Company Number: None

PATIENT
  Sex: Female

DRUGS (7)
  1. ADCIRCA [Suspect]
     Active Substance: TADALAFIL
     Indication: Pulmonary arterial hypertension
     Dosage: 40MG ONCE DAILY ORAL?
     Route: 048
     Dates: start: 202104
  2. LASIX [Suspect]
     Active Substance: FUROSEMIDE
  3. ELIQUIS [Suspect]
     Active Substance: APIXABAN
  4. SPIRONOLACTONE [Concomitant]
     Active Substance: SPIRONOLACTONE
  5. UPTRAVIS [Concomitant]
  6. LETAIRIS [Concomitant]
     Active Substance: AMBRISENTAN
  7. BUMEX [Concomitant]
     Active Substance: BUMETANIDE

REACTIONS (6)
  - Therapy interrupted [None]
  - Renal injury [None]
  - Gastrointestinal haemorrhage [None]
  - Fatigue [None]
  - Sleep deficit [None]
  - Cough [None]
